FAERS Safety Report 5305072-8 (Version None)
Quarter: 2007Q2

REPORT INFORMATION
  Report Type: 
  Country: None (occurrence: None)
  Receive Date: 20070423
  Receipt Date: 20070417
  Transmission Date: 20071010
  Serious: Yes (Other)
  Sender: FDA-Public Use
  Company Number: US-PFIZER INC-2005168885

PATIENT
  Sex: Female
  Weight: 68 kg

DRUGS (10)
  1. CELEBREX [Suspect]
     Indication: ARTHRITIS
  2. ZYRTEC [Suspect]
     Indication: ALLERGIC SINUSITIS
  3. DICLOFENAC [Suspect]
     Indication: ARTHRITIS
  4. ALL OTHER THERAPEUTIC PRODUCTS [Concomitant]
  5. SULAR [Concomitant]
  6. EVISTA [Concomitant]
  7. HYDROCODONE [Concomitant]
  8. MEGACE [Concomitant]
  9. LISINOPRIL [Concomitant]
  10. CENTRUM [Concomitant]

REACTIONS (6)
  - ALLERGIC SINUSITIS [None]
  - ARTHRITIS [None]
  - BONE TUBERCULOSIS [None]
  - HIP ARTHROPLASTY [None]
  - PAIN [None]
  - WEIGHT DECREASED [None]
